FAERS Safety Report 19420759 (Version 1)
Quarter: 2021Q2

REPORT INFORMATION
  Report Type: Spontaneous
  Country: JP (occurrence: JP)
  Receive Date: 20210616
  Receipt Date: 20210616
  Transmission Date: 20210717
  Serious: Yes (Disabling)
  Sender: FDA-Public Use
  Company Number: JP-REGENERON PHARMACEUTICALS, INC.-2021-59452

PATIENT

DRUGS (2)
  1. EYLEA [Suspect]
     Active Substance: AFLIBERCEPT
     Dosage: 2MG, ONCE, BOTH EYES
     Route: 031
     Dates: start: 202102, end: 202102
  2. EYLEA [Suspect]
     Active Substance: AFLIBERCEPT
     Indication: DIABETIC RETINAL OEDEMA
     Dosage: 2MG, ONCE, BOTH EYES
     Route: 031
     Dates: start: 20200701, end: 20200701

REACTIONS (2)
  - Peripheral artery occlusion [Unknown]
  - Gangrene [Unknown]

NARRATIVE: CASE EVENT DATE: 20210521
